FAERS Safety Report 12070779 (Version 1)
Quarter: 2016Q1

REPORT INFORMATION
  Report Type: Spontaneous
  Country: US (occurrence: US)
  Receive Date: 20160211
  Receipt Date: 20160211
  Transmission Date: 20160526
  Serious: No
  Sender: FDA-Public Use
  Company Number: US-ELI_LILLY_AND_COMPANY-US201601006292

PATIENT
  Sex: Male

DRUGS (4)
  1. HUMALOG [Suspect]
     Active Substance: INSULIN LISPRO
     Dosage: 9 U, EACH EVENING
     Route: 065
     Dates: start: 201309
  2. HUMALOG [Suspect]
     Active Substance: INSULIN LISPRO
     Indication: TYPE 2 DIABETES MELLITUS
     Dosage: 9 U, EACH MORNING
     Route: 065
     Dates: start: 201309
  3. HUMALOG [Suspect]
     Active Substance: INSULIN LISPRO
     Dosage: 7 U, QD
     Route: 065
     Dates: start: 201309
  4. LANTUS [Concomitant]
     Active Substance: INSULIN GLARGINE

REACTIONS (2)
  - Underdose [Unknown]
  - Blood glucose increased [Unknown]
